FAERS Safety Report 4649665-X (Version None)
Quarter: 2005Q2

REPORT INFORMATION
  Report Type: 
  Country: None (occurrence: None)
  Receive Date: 20050502
  Receipt Date: 20050425
  Transmission Date: 20051028
  Serious: Yes (Disabling)
  Sender: FDA-Public Use
  Company Number: US-BRISTOL-MYERS SQUIBB COMPANY-12945614

PATIENT
  Age: 54 Year
  Sex: Female
  Weight: 56 kg

DRUGS (3)
  1. CETUXIMAB [Suspect]
     Indication: SQUAMOUS CELL CARCINOMA
     Dosage: 1ST COURSE CETUXIMAB ADMINISTERED ON 22-MAR-2005. CETUXIMAB STUDY THERAPY ON HOLD.
     Route: 042
     Dates: start: 20050418, end: 20050418
  2. DOCETAXEL [Suspect]
     Indication: SQUAMOUS CELL CARCINOMA
     Dosage: 1ST COURSE DOCETAXEL ADMINISTERED ON 22-MAR-2005. DOCETAXEL STUDY THERAPY ON HOLD.
     Route: 042
     Dates: start: 20050418, end: 20050418
  3. RADIATION THERAPY [Suspect]
     Indication: SQUAMOUS CELL CARCINOMA
     Dosage: 1ST COURSE 22-MAR-2005. RADIATION 2 GY/DAY WEEKS 2-7. RADIATION STUDY THERAPY INTERRUPTED.
     Dates: start: 20050422, end: 20050422

REACTIONS (2)
  - DERMATITIS [None]
  - MUCOSAL INFLAMMATION [None]
